FAERS Safety Report 21302300 (Version 1)
Quarter: 2022Q3

REPORT INFORMATION
  Report Type: Spontaneous
  Country: US (occurrence: None)
  Receive Date: 20220906
  Receipt Date: 20220906
  Transmission Date: 20221027
  Serious: No
  Sender: FDA-Public Use
  Company Number: None

PATIENT
  Age: 71 Year
  Sex: Female
  Weight: 78.3 kg

DRUGS (22)
  1. CEPHALEXIN [Suspect]
     Active Substance: CEPHALEXIN
     Indication: Impetigo
     Dosage: FREQUENCY : 4 TIMES A DAY;?
     Route: 048
     Dates: start: 20220715, end: 20220719
  2. C-PAP [Concomitant]
  3. CELECOXIB [Concomitant]
     Active Substance: CELECOXIB
  4. CYCLOBENZAPRINE [Concomitant]
     Active Substance: CYCLOBENZAPRINE
  5. ESTRADIOL [Concomitant]
     Active Substance: ESTRADIOL
  6. FLUOXETINE [Concomitant]
     Active Substance: FLUOXETINE HYDROCHLORIDE
  7. HYDROCHLOROTHIAZIDE [Concomitant]
     Active Substance: HYDROCHLOROTHIAZIDE
  8. LETROZOLE [Concomitant]
     Active Substance: LETROZOLE
  9. LOSARTAN [Concomitant]
     Active Substance: LOSARTAN
  10. METFORMIN [Concomitant]
     Active Substance: METFORMIN HYDROCHLORIDE
  11. OMEPRAZOLE [Concomitant]
     Active Substance: OMEPRAZOLE
  12. WELLBUTRIN SR [Concomitant]
     Active Substance: BUPROPION HYDROCHLORIDE
  13. CAL-MAG [Concomitant]
  14. MINERALS\VITAMINS [Concomitant]
     Active Substance: MINERALS\VITAMINS
  15. RED YEAST RICE EXT [Concomitant]
  16. PROBIOTICS NOS [Concomitant]
     Active Substance: PROBIOTICS NOS
  17. SYSTANE (HYPROMELLOSE 2910 (4000 MPA.S)) [Concomitant]
     Active Substance: HYPROMELLOSE 2910 (4000 MPA.S)
  18. REFRESH CLASSIC [Concomitant]
     Active Substance: POLYVINYL ALCOHOL\POVIDONE
  19. PATADAY [Concomitant]
     Active Substance: OLOPATADINE HYDROCHLORIDE
  20. VITAMIN C [Concomitant]
     Active Substance: ASCORBIC ACID
  21. VITAMIN D3 [Concomitant]
     Active Substance: CHOLECALCIFEROL
  22. OMEGA 3 [Concomitant]
     Active Substance: CAPSAICIN

REACTIONS (3)
  - Pruritus [None]
  - Hypoaesthesia [None]
  - Gingival bleeding [None]

NARRATIVE: CASE EVENT DATE: 20220719
